FAERS Safety Report 6222324-8 (Version None)
Quarter: 2009Q2

REPORT INFORMATION
  Report Type: 
  Country: None (occurrence: None)
  Receive Date: 20090609
  Receipt Date: 20090609
  Transmission Date: 20091009
  Serious: Yes (Hospitalization)
  Sender: FDA-Public Use
  Company Number: None

PATIENT
  Sex: Female

DRUGS (2)
  1. BYSTOLIC [Suspect]
     Indication: HYPERTENSION
     Dosage: 2.5 MG DAILY PO
     Route: 048
     Dates: start: 20090103, end: 20090110
  2. NITROSTAT [Suspect]
     Indication: CHEST PAIN
     Dosage: 0.4 MG PRN PO
     Route: 048
     Dates: start: 20090110, end: 20090110

REACTIONS (2)
  - CHEST PAIN [None]
  - HYPOTENSION [None]
